FAERS Safety Report 16733117 (Version 1)
Quarter: 2019Q3

REPORT INFORMATION
  Report Type: Spontaneous
  Country: CA (occurrence: CA)
  Receive Date: 20190823
  Receipt Date: 20190823
  Transmission Date: 20191005
  Serious: Yes (Hospitalization, Other)
  Sender: FDA-Public Use
  Company Number: CA-AUROBINDO-AUR-APL-2019-054826

PATIENT

DRUGS (2)
  1. SANDOSTATIN [Suspect]
     Active Substance: OCTREOTIDE ACETATE
     Indication: CARCINOID TUMOUR
     Dosage: 30.0 MILLIGRAM, EVERY MONTH
     Route: 030
  2. PANTOPRAZOLE [Suspect]
     Active Substance: PANTOPRAZOLE
     Indication: PRODUCT USED FOR UNKNOWN INDICATION
     Dosage: UNK
     Route: 048

REACTIONS (9)
  - Atelectasis [Recovered/Resolved]
  - Malaise [Recovered/Resolved]
  - Carcinoid tumour of the small bowel [Recovered/Resolved]
  - Diarrhoea [Recovered/Resolved]
  - Rectal haemorrhage [Recovered/Resolved]
  - Blood pressure increased [Recovered/Resolved]
  - Pilonidal cyst [Recovered/Resolved]
  - Abdominal pain [Recovered/Resolved]
  - Malignant neoplasm progression [Recovered/Resolved]
